FAERS Safety Report 4357651-2 (Version None)
Quarter: 2004Q2

REPORT INFORMATION
  Report Type: 
  Country: None (occurrence: None)
  Receive Date: 20040513
  Receipt Date: 20031104
  Transmission Date: 20050107
  Serious: Yes (Hospitalization)
  Sender: FDA-Public Use
  Company Number: GB-MERCK-0311GBR00032

PATIENT
  Age: 70 Year
  Sex: Male

DRUGS (3)
  1. [THERAPY UNSPECIFIED] [Concomitant]
     Route: 065
  2. ALBUTEROL [Concomitant]
     Route: 065
  3. COZAAR [Suspect]
     Route: 048

REACTIONS (1)
  - DEMENTIA [None]
